FAERS Safety Report 4474761-X (Version None)
Quarter: 2004Q4

REPORT INFORMATION
  Report Type: 
  Country: None (occurrence: None)
  Receive Date: 20041012
  Receipt Date: 20041005
  Transmission Date: 20050328
  Serious: Yes (Hospitalization)
  Sender: FDA-Public Use
  Company Number: ZONI002031

PATIENT
  Age: 32 Year
  Sex: Female

DRUGS (2)
  1. EXCEGRAN (ZONISAMIDE) [Suspect]
     Indication: CONVULSION
     Dosage: 200 MG, 2 IN 1 D, ORAL
     Route: 048
     Dates: start: 20020829, end: 20020923
  2. PHENYTOIN [Concomitant]

REACTIONS (2)
  - EPILEPSY [None]
  - STEVENS-JOHNSON SYNDROME [None]
